FAERS Safety Report 7519167-1 (Version None)
Quarter: 2011Q2

REPORT INFORMATION
  Report Type: 
  Country: None (occurrence: None)
  Receive Date: 20110602
  Receipt Date: 20110525
  Transmission Date: 20111010
  Serious: Yes (Other)
  Sender: FDA-Public Use
  Company Number: US-ROCHE-779617

PATIENT
  Sex: Female
  Weight: 54 kg

DRUGS (2)
  1. CAPECITABINE [Suspect]
     Dosage: CYCLES; TWO WEEKS ON AND ONE WEEK OFF
     Route: 048
  2. CAPECITABINE [Suspect]
     Indication: BREAST CANCER METASTATIC
     Dosage: CYCLES; TWO WEEKS ON AND ONE WEEK OFF
     Route: 048
     Dates: start: 20110222

REACTIONS (5)
  - DYSPNOEA [None]
  - DIARRHOEA [None]
  - HAEMORRHAGE [None]
  - PAIN IN EXTREMITY [None]
  - NEOPLASM MALIGNANT [None]
